FAERS Safety Report 9658860 (Version 2)
Quarter: 2013Q4

REPORT INFORMATION
  Report Type: Spontaneous
  Country: CA (occurrence: CA)
  Receive Date: 20131030
  Receipt Date: 20131030
  Transmission Date: 20140711
  Serious: Yes (Other)
  Sender: FDA-Public Use
  Company Number: CA-TAKEDA-TPA2012A02253

PATIENT
  Sex: 0

DRUGS (5)
  1. HP PAC [Suspect]
     Indication: HELICOBACTER INFECTION
     Dosage: UNK, BID
     Route: 048
     Dates: start: 20120406, end: 20120419
  2. UNKNOWN SLEEPING PILL [Concomitant]
     Indication: SLEEP DISORDER
  3. ZOLOFT [Concomitant]
  4. BROMAZEPAM [Concomitant]
  5. GLUCOSAMINE [Concomitant]

REACTIONS (5)
  - Troponin increased [Recovered/Resolved]
  - Chest discomfort [Recovered/Resolved]
  - Dyspepsia [Recovered/Resolved]
  - Vomiting [Recovered/Resolved]
  - Nausea [Recovered/Resolved]
